FAERS Safety Report 4901629-4 (Version None)
Quarter: 2006Q1

REPORT INFORMATION
  Report Type: 
  Country: None (occurrence: None)
  Receive Date: 20060206
  Receipt Date: 20050722
  Transmission Date: 20060701
  Serious: Yes (Other)
  Sender: FDA-Public Use
  Company Number: US-BRISTOL-MYERS SQUIBB COMPANY-13052311

PATIENT
  Age: 56 Year
  Sex: Female
  Weight: 53 kg

DRUGS (6)
  1. TAXOL [Suspect]
     Indication: CERVIX CARCINOMA
     Dosage: GIVEN OVER 24 HOURS
     Route: 042
     Dates: start: 20050610
  2. BENADRYL [Concomitant]
     Indication: PREMEDICATION
     Route: 042
  3. DECADRON PHOSPHATE [Concomitant]
     Indication: PREMEDICATION
     Route: 042
  4. TAGAMET [Concomitant]
     Indication: PREMEDICATION
     Route: 042
  5. WARFARIN [Concomitant]
  6. CLONAZEPAM [Concomitant]

REACTIONS (5)
  - BLOOD PRESSURE DECREASED [None]
  - EAR DISORDER [None]
  - FLUSHING [None]
  - INFUSION RELATED REACTION [None]
  - VITREOUS FLOATERS [None]
